FAERS Safety Report 8381007-9 (Version None)
Quarter: 2012Q2

REPORT INFORMATION
  Report Type: 
  Country: None (occurrence: None)
  Receive Date: 20120523
  Receipt Date: 20120508
  Transmission Date: 20120825
  Serious: Yes (Other)
  Sender: FDA-Public Use
  Company Number: CHPA2012US004765

PATIENT
  Age: 67 Year
  Sex: Female

DRUGS (3)
  1. EXCEDRIN EXTRA STRENGTH TABLETS [Suspect]
     Indication: HEADACHE
     Dosage: UNK, UNK
     Route: 048
  2. EXCEDRIN (MIGRAINE) [Suspect]
     Indication: HEADACHE
     Dosage: 1 DF, QD
     Route: 048
  3. CALCIUM CARBONATE [Concomitant]

REACTIONS (2)
  - UNDERDOSE [None]
  - ULCER HAEMORRHAGE [None]
